FAERS Safety Report 12235873 (Version 10)
Quarter: 2017Q1

REPORT INFORMATION
  Report Type: Spontaneous
  Country: US (occurrence: US)
  Receive Date: 20160404
  Receipt Date: 20170331
  Transmission Date: 20170428
  Serious: Yes (Hospitalization, Other)
  Sender: FDA-Public Use
  Company Number: US-BAYER-2016-058050

PATIENT
  Age: 65 Year
  Sex: Male
  Weight: 108.8 kg

DRUGS (29)
  1. AZITHROMYCIN ANHYDROUS. [Concomitant]
     Active Substance: AZITHROMYCIN ANHYDROUS
  2. PROTONIX [Concomitant]
     Active Substance: PANTOPRAZOLE SODIUM
  3. AFRIN SINUS [Suspect]
     Active Substance: OXYMETAZOLINE HYDROCHLORIDE
     Indication: SINUSITIS
  4. TICAGRELOR [Interacting]
     Active Substance: TICAGRELOR
     Dosage: UNK
     Dates: end: 20151203
  5. LINAGLIPTIN [Concomitant]
     Active Substance: LINAGLIPTIN
  6. LASIX [Concomitant]
     Active Substance: FUROSEMIDE
     Dosage: 80 MG, BID
  7. FLOMAX [Concomitant]
     Active Substance: TAMSULOSIN HYDROCHLORIDE
  8. MUCINEX [Concomitant]
     Active Substance: GUAIFENESIN
  9. NYSTOP [Concomitant]
     Active Substance: NYSTATIN
  10. WARFARIN SODIUM. [Interacting]
     Active Substance: WARFARIN SODIUM
     Dosage: UNK
     Dates: end: 20160219
  11. DICYCLOMINE [Concomitant]
     Active Substance: DICYCLOMINE HYDROCHLORIDE
  12. CETIRIZINE [Concomitant]
     Active Substance: CETIRIZINE HYDROCHLORIDE
  13. ATORVASTATIN CALCIUM. [Concomitant]
     Active Substance: ATORVASTATIN CALCIUM
     Indication: BLOOD CHOLESTEROL ABNORMAL
  14. FUROSEMIDE. [Concomitant]
     Active Substance: FUROSEMIDE
  15. FLUOXETINE HYDROCHLORIDE. [Concomitant]
     Active Substance: FLUOXETINE HYDROCHLORIDE
     Indication: DEPRESSION
     Dosage: UNK
     Dates: start: 20160418
  16. WARFARIN [Concomitant]
     Active Substance: WARFARIN
  17. ONDANSETRON [Concomitant]
     Active Substance: ONDANSETRON
  18. BIFIDOBACTERIUM LACTIS [Concomitant]
  19. FLONASE [Concomitant]
     Active Substance: FLUTICASONE PROPIONATE
     Dosage: UNK
  20. TRUBIOTICS [Suspect]
     Active Substance: BIFIDOBACTERIUM LONGUM\LACTOBACILLUS ACIDOPHILUS
  21. WARFARIN SODIUM. [Interacting]
     Active Substance: WARFARIN SODIUM
     Dosage: UNK
     Dates: end: 201511
  22. SPIRONOLACTONE. [Concomitant]
     Active Substance: SPIRONOLACTONE
     Dosage: UNK
     Dates: end: 201511
  23. FLUOXETINE HYDROCHLORIDE. [Concomitant]
     Active Substance: FLUOXETINE HYDROCHLORIDE
     Indication: DEPRESSION
  24. LISINOPRIL. [Concomitant]
     Active Substance: LISINOPRIL
     Dosage: UNK
     Dates: end: 2016
  25. DIGOXIN. [Concomitant]
     Active Substance: DIGOXIN
  26. FLOMAX [Concomitant]
     Active Substance: TAMSULOSIN HYDROCHLORIDE
  27. BAYER LOW DOSE [Suspect]
     Active Substance: ASPIRIN
     Indication: PRODUCT USED FOR UNKNOWN INDICATION
     Dosage: UNK
  28. METOPROLOL SUCCINATE. [Concomitant]
     Active Substance: METOPROLOL SUCCINATE
     Indication: ATRIAL FIBRILLATION
     Dosage: 12.5 MG, QD
     Dates: end: 2016
  29. SENNA [Concomitant]
     Active Substance: SENNA LEAF\SENNOSIDES\SENNOSIDES A AND B

REACTIONS (51)
  - Haematoma [Recovered/Resolved]
  - Sepsis [Recovered/Resolved]
  - Hypotension [Recovered/Resolved]
  - Nausea [None]
  - Nasal congestion [Unknown]
  - Haemoglobin decreased [Recovered/Resolved]
  - Internal haemorrhage [Recovered/Resolved]
  - Sepsis [None]
  - Diarrhoea [Recovered/Resolved]
  - Sinusitis [Recovered/Resolved]
  - Productive cough [Unknown]
  - Peritoneal haematoma [Recovered/Resolved]
  - Dyspnoea [Not Recovered/Not Resolved]
  - Weight decreased [Recovered/Resolved]
  - Labelled drug-drug interaction medication error [Recovered/Resolved]
  - Protein total decreased [None]
  - Pleural effusion [Unknown]
  - Paraesthesia [Unknown]
  - Laceration [None]
  - Thrombosis [Unknown]
  - Peritoneal abscess [Recovered/Resolved]
  - Cardiac failure congestive [Unknown]
  - Wound secretion [Recovered/Resolved]
  - Decubitus ulcer [Recovered/Resolved]
  - Urine output decreased [Recovered/Resolved]
  - Dysphagia [Recovered/Resolved]
  - Brain natriuretic peptide increased [None]
  - Malnutrition [Recovered/Resolved]
  - Urinary tract infection [Recovered/Resolved]
  - Internal haemorrhage [Recovered/Resolved]
  - Dysgeusia [Recovered/Resolved]
  - Haemoglobin decreased [Recovered/Resolved]
  - Vascular occlusion [None]
  - Skin ulcer [Recovered/Resolved]
  - Constipation [Recovered/Resolved]
  - Lung infiltration [Unknown]
  - Rotator cuff syndrome [None]
  - Dyspnoea [Recovered/Resolved]
  - Clostridium difficile infection [Recovered/Resolved]
  - Clostridium difficile infection [Recovered/Resolved]
  - Cardiac failure congestive [Not Recovered/Not Resolved]
  - Abdominal pain upper [Recovered/Resolved]
  - Body temperature decreased [None]
  - Nasopharyngitis [Unknown]
  - Peripheral swelling [Unknown]
  - Drug administration error [Recovered/Resolved]
  - Nephrolithiasis [Recovered/Resolved]
  - Body temperature decreased [Recovered/Resolved]
  - Limb injury [Recovered/Resolved]
  - Atelectasis [Unknown]
  - Walking aid user [Not Recovered/Not Resolved]

NARRATIVE: CASE EVENT DATE: 2015
